FAERS Safety Report 17621980 (Version 15)
Quarter: 2022Q1

REPORT INFORMATION
  Report Type: Report from Study
  Country: US (occurrence: US)
  Receive Date: 20200403
  Receipt Date: 20220119
  Transmission Date: 20220423
  Serious: Yes (Hospitalization, Other)
  Sender: FDA-Public Use
  Company Number: US-GLAXOSMITHKLINE-US2019TSO231828

PATIENT
  Age: 61 Year
  Sex: Female

DRUGS (16)
  1. NIRAPARIB [Suspect]
     Active Substance: NIRAPARIB
     Indication: Ovarian cancer
     Dosage: 200 MG, QD
     Route: 048
     Dates: start: 20191101
  2. NIRAPARIB [Suspect]
     Active Substance: NIRAPARIB
     Dosage: 300 MG, QD
     Route: 048
     Dates: start: 20191212
  3. NIRAPARIB [Suspect]
     Active Substance: NIRAPARIB
     Dosage: 300 MG, QD
     Route: 065
  4. NIRAPARIB [Suspect]
     Active Substance: NIRAPARIB
     Dosage: UNK
     Route: 065
  5. NIRAPARIB [Suspect]
     Active Substance: NIRAPARIB
     Dosage: 100 MG, QD
     Route: 065
  6. NIRAPARIB [Suspect]
     Active Substance: NIRAPARIB
     Dosage: 100 MG, QD
     Route: 048
  7. NIRAPARIB [Suspect]
     Active Substance: NIRAPARIB
     Dosage: 100 MG, QD
     Route: 048
  8. NIRAPARIB [Suspect]
     Active Substance: NIRAPARIB
     Dosage: 100 MG, QD
     Route: 048
  9. NIRAPARIB [Suspect]
     Active Substance: NIRAPARIB
     Dosage: 100 MG, QD
  10. NIRAPARIB [Suspect]
     Active Substance: NIRAPARIB
     Dosage: 100 MG, QD
     Route: 048
  11. NIRAPARIB [Suspect]
     Active Substance: NIRAPARIB
     Dosage: 100 MG, QD
  12. METOPROLOL [Concomitant]
     Active Substance: METOPROLOL
     Indication: Product used for unknown indication
     Dosage: UNK
  13. ATORVASTATIN [Concomitant]
     Active Substance: ATORVASTATIN
     Indication: Product used for unknown indication
     Dosage: UNK
  14. ASPIRIN [Concomitant]
     Active Substance: ASPIRIN
     Indication: Product used for unknown indication
     Dosage: UNK
  15. BRILINTA [Concomitant]
     Active Substance: TICAGRELOR
     Indication: Product used for unknown indication
     Dosage: UNK
  16. LOSARTAN [Concomitant]
     Active Substance: LOSARTAN
     Indication: Hypertension
     Dosage: 25 MG, QD

REACTIONS (47)
  - Full blood count abnormal [Unknown]
  - Myocardial infarction [Not Recovered/Not Resolved]
  - Near death experience [Unknown]
  - Ear infection [Not Recovered/Not Resolved]
  - Contusion [Not Recovered/Not Resolved]
  - Rash macular [Not Recovered/Not Resolved]
  - Nasal congestion [Unknown]
  - Hypoaesthesia [Unknown]
  - Paraesthesia [Unknown]
  - Abdominal discomfort [Unknown]
  - Insomnia [Not Recovered/Not Resolved]
  - Anaemia [Unknown]
  - Nausea [Not Recovered/Not Resolved]
  - Asthenia [Not Recovered/Not Resolved]
  - Fatigue [Not Recovered/Not Resolved]
  - Platelet count decreased [Unknown]
  - Palpitations [Recovered/Resolved]
  - Oropharyngeal pain [Recovered/Resolved]
  - Cough [Unknown]
  - Illness [Unknown]
  - Hypertension [Not Recovered/Not Resolved]
  - White coat hypertension [Not Recovered/Not Resolved]
  - Blood cholesterol increased [Unknown]
  - Cardiac disorder [Not Recovered/Not Resolved]
  - Drug intolerance [Unknown]
  - Weight increased [Unknown]
  - Anxiety [Unknown]
  - Heart rate increased [Recovered/Resolved]
  - Seasonal allergy [Unknown]
  - Abdominal pain [Recovered/Resolved]
  - Back pain [Recovered/Resolved]
  - Musculoskeletal discomfort [Unknown]
  - Scan abnormal [Unknown]
  - Pain in jaw [Unknown]
  - Atrioventricular block [Unknown]
  - Blood potassium decreased [Not Recovered/Not Resolved]
  - Bone pain [Unknown]
  - Myalgia [Unknown]
  - Visual impairment [Not Recovered/Not Resolved]
  - Stress [Not Recovered/Not Resolved]
  - Weight decreased [Not Recovered/Not Resolved]
  - Vitreous floaters [Not Recovered/Not Resolved]
  - Photopsia [Not Recovered/Not Resolved]
  - Decreased activity [Not Recovered/Not Resolved]
  - Blood pressure increased [Not Recovered/Not Resolved]
  - Nervousness [Unknown]
  - Product dose omission issue [Unknown]

NARRATIVE: CASE EVENT DATE: 20191201
